FAERS Safety Report 6316198-4 (Version None)
Quarter: 2009Q3

REPORT INFORMATION
  Report Type: 
  Country: None (occurrence: None)
  Receive Date: 20090820
  Receipt Date: 20090810
  Transmission Date: 20100115
  Serious: Yes (Other)
  Sender: FDA-Public Use
  Company Number: US-PURDUE-DEU-2009-0005433

PATIENT
  Age: 27 Year
  Sex: Male

DRUGS (12)
  1. HYDROMORPHONE HCL [Suspect]
     Indication: PHANTOM PAIN
     Dosage: 100 MG, Q24H
     Route: 042
  2. HYDROMORPHONE HCL [Suspect]
     Indication: BREAKTHROUGH PAIN
  3. METHADONE [Suspect]
     Indication: PHANTOM PAIN
     Dosage: 10 MG, TID
     Route: 048
  4. METHADONE [Suspect]
     Indication: BREAKTHROUGH PAIN
  5. FENTANYL [Suspect]
     Indication: PHANTOM PAIN
     Dosage: UNK
  6. FENTANYL [Suspect]
     Indication: BREAKTHROUGH PAIN
  7. GABAPENTIN [Suspect]
     Indication: PHANTOM PAIN
     Dosage: 1200 MG, TID
     Route: 065
  8. GABAPENTIN [Suspect]
     Indication: BREAKTHROUGH PAIN
  9. AMITRIPTYLINE [Suspect]
     Indication: PHANTOM PAIN
     Dosage: 75 MG, SEE TEXT
     Route: 065
  10. AMITRIPTYLINE [Suspect]
     Indication: BREAKTHROUGH PAIN
  11. CELECOXIB [Suspect]
     Indication: PHANTOM PAIN
     Dosage: 200 MG, BID
     Route: 065
  12. CELECOXIB [Suspect]
     Indication: BREAKTHROUGH PAIN

REACTIONS (2)
  - DRUG WITHDRAWAL SYNDROME [None]
  - PHANTOM PAIN [None]
